FAERS Safety Report 17596008 (Version 1)
Quarter: 2020Q1

REPORT INFORMATION
  Report Type: Spontaneous
  Country: FI (occurrence: FI)
  Receive Date: 20200329
  Receipt Date: 20200329
  Transmission Date: 20200409
  Serious: Yes (Other)
  Sender: FDA-Public Use
  Company Number: FI-SUN PHARMACEUTICAL INDUSTRIES LTD-2020RR-241998

PATIENT
  Sex: Female

DRUGS (1)
  1. ATORVASTATIN [Suspect]
     Active Substance: ATORVASTATIN
     Indication: BLOOD CHOLESTEROL INCREASED
     Dosage: 10 MILLIGRAM, DAILY
     Route: 065
     Dates: start: 20191204, end: 20200229

REACTIONS (14)
  - Memory impairment [Unknown]
  - Insomnia [Unknown]
  - Cataract [Unknown]
  - Chromaturia [Unknown]
  - Constipation [Unknown]
  - Yellow skin [Unknown]
  - Flatulence [Unknown]
  - Oropharyngeal pain [Unknown]
  - Erythema [Unknown]
  - Tinnitus [Unknown]
  - Dysphagia [Unknown]
  - Palpitations [Unknown]
  - Abdominal discomfort [Unknown]
  - Fatigue [Unknown]

NARRATIVE: CASE EVENT DATE: 201912
